FAERS Safety Report 19963452 (Version 1)
Quarter: 2021Q4

REPORT INFORMATION
  Report Type: Spontaneous
  Country: PT (occurrence: PT)
  Receive Date: 20211018
  Receipt Date: 20211018
  Transmission Date: 20220303
  Serious: Yes (Hospitalization)
  Sender: FDA-Public Use
  Company Number: PT-MYLANLABS-2021M1072637

PATIENT
  Age: 65 Year
  Sex: Male

DRUGS (5)
  1. REMIFENTANIL [Suspect]
     Active Substance: REMIFENTANIL
     Indication: Anaesthesia
     Dosage: 0.25 MUG/KG/MIN
     Route: 042
  2. PROPOFOL [Suspect]
     Active Substance: PROPOFOL
     Indication: Anaesthesia
     Dosage: 4MUG/ML
     Route: 042
  3. METHIMAZOLE [Concomitant]
     Active Substance: METHIMAZOLE
     Indication: Hypertension
     Dosage: UNK
     Route: 065
  4. EPHEDRINE [Concomitant]
     Active Substance: EPHEDRINE
     Indication: Hypotension
     Dosage: 10 MILLIGRAM
     Route: 065
  5. ROCURONIUM [Concomitant]
     Active Substance: ROCURONIUM BROMIDE
     Indication: Product used for unknown indication
     Dosage: 0.6 MILLIGRAM/KILOGRAM
     Route: 065

REACTIONS (3)
  - Drug-disease interaction [Recovering/Resolving]
  - Hypothyroidism [Recovering/Resolving]
  - Hypotension [Recovering/Resolving]
